FAERS Safety Report 17553182 (Version 2)
Quarter: 2020Q2

REPORT INFORMATION
  Report Type: Spontaneous
  Country: US (occurrence: US)
  Receive Date: 20200317
  Receipt Date: 20200403
  Transmission Date: 20200713
  Serious: No
  Sender: FDA-Public Use
  Company Number: US-HISAMITSU-2019-US-006648

PATIENT
  Age: 61 Year
  Sex: Male
  Weight: 78.02 kg

DRUGS (4)
  1. IBUPROFEN. [Concomitant]
     Active Substance: IBUPROFEN
     Dosage: AS NEEDED FOR PAIN (WHEN PATCH IS OFF)
  2. TYLENOL [Concomitant]
     Active Substance: ACETAMINOPHEN
     Dosage: AS NEEDED FOR PAIN (WHEN PATCH IS ON)
  3. UNSPECIFIED PROBIOTIC [Concomitant]
     Dosage: AS NEEDED
  4. SALONPAS PAIN RELIEF [Suspect]
     Active Substance: MENTHOL\METHYL SALICYLATE
     Indication: ANALGESIC THERAPY
     Dosage: 1 PATCH ON BACK OF NECK FOR 6-8 HOURS, OFF 1 HOUR, REPEAT
     Route: 061
     Dates: start: 20190402, end: 20190410

REACTIONS (6)
  - Application site exfoliation [Not Recovered/Not Resolved]
  - Application site pain [Not Recovered/Not Resolved]
  - Off label use [Unknown]
  - Skin wrinkling [Not Recovered/Not Resolved]
  - Application site erythema [Not Recovered/Not Resolved]
  - Application site irritation [Not Recovered/Not Resolved]

NARRATIVE: CASE EVENT DATE: 20190407
